FAERS Safety Report 6518930-3 (Version None)
Quarter: 2009Q4

REPORT INFORMATION
  Report Type: 
  Country: None (occurrence: None)
  Receive Date: 20091228
  Receipt Date: 20091216
  Transmission Date: 20100525
  Serious: Yes (Life-Threatening, Disabling, Other)
  Sender: FDA-Public Use
  Company Number: FR-BRISTOL-MYERS SQUIBB COMPANY-14824114

PATIENT
  Age: 63 Year
  Sex: Male
  Weight: 68 kg

DRUGS (5)
  1. ERBITUX [Suspect]
     Indication: TONSIL CANCER
     Dosage: 3CYCLES ( DAY 1 DAY 8 + DAY 15),500 MG:23MAR-14MAY09
     Route: 042
     Dates: start: 20081212, end: 20090514
  2. CISPLATIN [Suspect]
     Indication: TONSIL CANCER
     Route: 042
     Dates: start: 20081212, end: 20090206
  3. RADIOTHERAPY [Suspect]
     Indication: TONSIL CANCER
  4. FLUOROURACIL [Suspect]
     Indication: TONSIL CANCER
     Route: 042
     Dates: start: 20081212, end: 20090206
  5. TAXOTERE [Suspect]
     Indication: TONSIL CANCER
     Route: 042
     Dates: start: 20081212, end: 20090206

REACTIONS (3)
  - ENCEPHALOPATHY [None]
  - MALNUTRITION [None]
  - VITAMIN B1 DEFICIENCY [None]
